FAERS Safety Report 7046293-6 (Version None)
Quarter: 2010Q4

REPORT INFORMATION
  Report Type: 
  Country: None (occurrence: None)
  Receive Date: 20101014
  Receipt Date: 20101001
  Transmission Date: 20110411
  Serious: Yes (Other)
  Sender: FDA-Public Use
  Company Number: B0677171A

PATIENT
  Age: 48 Year
  Sex: Male

DRUGS (8)
  1. ACYCLOVIR [Suspect]
     Indication: PROPHYLAXIS
     Route: 065
  2. LANSOPRAZOLE [Suspect]
     Route: 065
  3. ALFACALCIDOL [Suspect]
     Route: 065
  4. PENICILLIN [Suspect]
     Indication: PROPHYLAXIS
     Route: 065
  5. COTRIM [Suspect]
     Indication: PROPHYLAXIS
     Route: 065
  6. CYCLOPHOSPHAMIDE [Suspect]
     Indication: MULTIPLE MYELOMA
     Route: 065
  7. THALIDOMIDE [Suspect]
     Indication: MULTIPLE MYELOMA
     Route: 065
  8. DEXAMETHASONE [Suspect]
     Indication: MULTIPLE MYELOMA
     Route: 065

REACTIONS (3)
  - FOLLICULAR MUCINOSIS [None]
  - RASH PAPULAR [None]
  - SKIN LESION [None]
